FAERS Safety Report 5503066-0 (Version None)
Quarter: 2007Q4

REPORT INFORMATION
  Report Type: 
  Country: None (occurrence: None)
  Receive Date: 20071031
  Receipt Date: 20071030
  Transmission Date: 20080405
  Serious: Yes (Life-Threatening, Hospitalization, Other)
  Sender: FDA-Public Use
  Company Number: BE-BRISTOL-MYERS SQUIBB COMPANY-13962923

PATIENT
  Age: 37 Year
  Sex: Female

DRUGS (3)
  1. TRAZODONE HCL [Suspect]
     Indication: DEPRESSION
  2. FLUOXETINE [Concomitant]
  3. FUROSEMIDE [Concomitant]

REACTIONS (7)
  - BRADYCARDIA [None]
  - ELECTROCARDIOGRAM QT PROLONGED [None]
  - HYPOKALAEMIA [None]
  - HYPOMAGNESAEMIA [None]
  - HYPOTENSION [None]
  - INTENTIONAL OVERDOSE [None]
  - TORSADE DE POINTES [None]
